FAERS Safety Report 8543628-X (Version None)
Quarter: 2012Q3

REPORT INFORMATION
  Report Type: 
  Country: None (occurrence: None)
  Receive Date: 20120727
  Receipt Date: 20120718
  Transmission Date: 20120928
  Serious: Yes (Hospitalization)
  Sender: FDA-Public Use
  Company Number: FR-JNJFOC-20120710568

PATIENT
  Age: 58 Year
  Sex: Female

DRUGS (8)
  1. LEVOTHYROXINE SODIUM [Concomitant]
     Route: 065
  2. FOLIC ACID [Concomitant]
     Route: 065
  3. METHOTREXATE [Concomitant]
     Route: 065
     Dates: start: 20020101
  4. SINGULAIR [Concomitant]
     Route: 065
  5. ANTIVITAMIN K [Concomitant]
     Route: 065
  6. REMICADE [Suspect]
     Indication: RHEUMATOID ARTHRITIS
     Route: 042
     Dates: start: 20050414, end: 20120301
  7. QVAR 40 [Concomitant]
     Route: 065
  8. NEXIUM [Concomitant]
     Route: 065

REACTIONS (3)
  - MENINGITIS ASEPTIC [None]
  - URINARY TRACT INFECTION [None]
  - HERPES VIRUS INFECTION [None]
